FAERS Safety Report 22118225 (Version 1)
Quarter: 2023Q1

REPORT INFORMATION
  Report Type: Spontaneous
  Country: US (occurrence: US)
  Receive Date: 20230321
  Receipt Date: 20230321
  Transmission Date: 20230418
  Serious: Yes (Other)
  Sender: FDA-Public Use
  Company Number: US-ARDELYX-2023ARDX000125

PATIENT

DRUGS (4)
  1. IBSRELA [Suspect]
     Active Substance: TENAPANOR HYDROCHLORIDE
     Indication: Autonomic neuropathy
     Dosage: 50 MILLIGRAM
     Route: 048
  2. IBSRELA [Suspect]
     Active Substance: TENAPANOR HYDROCHLORIDE
     Dosage: TWO TABLETS AT ONCE
     Route: 048
  3. MOTEGRITY [Concomitant]
     Active Substance: PRUCALOPRIDE SUCCINATE
     Indication: Autonomic neuropathy
     Dosage: UNK
     Route: 065
  4. MESTINON [Concomitant]
     Active Substance: PYRIDOSTIGMINE BROMIDE
     Indication: Product used for unknown indication
     Dosage: UNK
     Route: 065

REACTIONS (8)
  - Impaired gastric emptying [Unknown]
  - Retching [Unknown]
  - Decreased appetite [Unknown]
  - Blood sodium increased [Unknown]
  - Therapeutic product effect variable [Unknown]
  - Diarrhoea [Unknown]
  - Intentional overdose [Unknown]
  - Off label use [Unknown]
